FAERS Safety Report 12688376 (Version 3)
Quarter: 2016Q4

REPORT INFORMATION
  Report Type: Report from Study
  Country: DE (occurrence: DE)
  Receive Date: 20160825
  Receipt Date: 20161024
  Transmission Date: 20170207
  Serious: Yes (Other)
  Sender: FDA-Public Use
  Company Number: DE-GILEAD-2015-0143224

PATIENT
  Age: 78 Year
  Sex: Female
  Weight: 50 kg

DRUGS (11)
  1. AMLODIPIN                          /00972401/ [Interacting]
     Active Substance: AMLODIPINE BESYLATE
     Indication: PRODUCT USED FOR UNKNOWN INDICATION
     Dosage: 5 MG, QD
     Route: 065
     Dates: start: 20140626
  2. AMLODIPIN                          /00972401/ [Interacting]
     Active Substance: AMLODIPINE BESYLATE
     Dosage: UNK
     Route: 065
     Dates: start: 20140825
  3. BISOPROLOL [Concomitant]
     Active Substance: BISOPROLOL
     Dosage: 5.0 MG, QD
     Dates: start: 20140728, end: 20140921
  4. BISOPROLOL [Concomitant]
     Active Substance: BISOPROLOL
     Dosage: 5.0 MG, QD
     Dates: start: 20140922, end: 20141022
  5. BISOPROLOL [Concomitant]
     Active Substance: BISOPROLOL
     Dosage: 5.0 MG, QD
     Dates: start: 20141215
  6. BISOPROLOL [Concomitant]
     Active Substance: BISOPROLOL
     Dosage: 2.5 MG, QD
     Dates: start: 20140626, end: 20140727
  7. NOVALGIN [Concomitant]
     Active Substance: METAMIZOLE SODIUM
     Dosage: UNK
  8. OLYSIO [Suspect]
     Active Substance: SIMEPREVIR
     Indication: CHRONIC HEPATITIS C
     Dosage: 150 MG, QD
     Route: 048
     Dates: start: 20140630, end: 20140922
  9. SOFOSBUVIR [Suspect]
     Active Substance: SOFOSBUVIR
     Indication: CHRONIC HEPATITIS C
     Dosage: 400 MG, QD
     Route: 048
     Dates: start: 20140630, end: 20140922
  10. LOSARTAN. [Concomitant]
     Active Substance: LOSARTAN
     Dosage: 1 DF, QD
     Dates: start: 20140626
  11. BISOPROLOL [Concomitant]
     Active Substance: BISOPROLOL
     Dosage: 5.0 MG, QD
     Dates: start: 20141023, end: 20141214

REACTIONS (5)
  - Drug interaction [Unknown]
  - Blood pressure abnormal [Recovered/Resolved]
  - Fatigue [Recovered/Resolved]
  - Skin disorder [Recovered/Resolved with Sequelae]
  - Headache [Recovered/Resolved]

NARRATIVE: CASE EVENT DATE: 20140708
